FAERS Safety Report 13416262 (Version 1)
Quarter: 2017Q2

REPORT INFORMATION
  Report Type: Spontaneous
  Country: US (occurrence: US)
  Receive Date: 20170406
  Receipt Date: 20170406
  Transmission Date: 20170830
  Serious: No
  Sender: FDA-Public Use
  Company Number: US-BAYER-2017-066139

PATIENT
  Age: 2 Year
  Sex: Female
  Weight: 12.7 kg

DRUGS (2)
  1. CLARITIN [Suspect]
     Active Substance: LORATADINE
     Indication: MULTIPLE ALLERGIES
     Dosage: UNK
  2. CLARITIN [Suspect]
     Active Substance: LORATADINE
     Indication: MULTIPLE ALLERGIES
     Dosage: HALVING THE DOSE, UNK

REACTIONS (6)
  - Insomnia [Unknown]
  - Drug administered to patient of inappropriate age [None]
  - Crying [Unknown]
  - Drug ineffective [Unknown]
  - Feeling abnormal [Unknown]
  - Mood altered [Unknown]
